FAERS Safety Report 9484120 (Version 2)
Quarter: 2013Q3

REPORT INFORMATION
  Report Type: Spontaneous
  Country: CA (occurrence: CA)
  Receive Date: 20130828
  Receipt Date: 20130828
  Transmission Date: 20140515
  Serious: Yes (Hospitalization, Other)
  Sender: FDA-Public Use
  Company Number: CA-AMGEN-KDL330616

PATIENT
  Age: 49 Year
  Sex: Female
  Weight: 56.8 kg

DRUGS (15)
  1. ENBREL [Suspect]
     Indication: RHEUMATOID ARTHRITIS
     Dosage: UNK UNK, QWK
     Route: 065
     Dates: start: 20081118
  2. ENBREL [Suspect]
     Dosage: UNK UNK, QWK
     Route: 065
     Dates: start: 20081118
  3. ACETAMINOPHEN [Concomitant]
     Dosage: UNK UNK, PRN
  4. DOCUSATE SODIUM [Concomitant]
     Dosage: UNK UNK, PRN
  5. METOCLOPRAMIDE [Concomitant]
     Dosage: UNK UNK, UNK
     Route: 048
  6. METHOTREXATE [Concomitant]
     Dosage: UNK UNK, UNK
     Route: 058
  7. PHENYTOIN SODIUM [Concomitant]
     Dosage: UNK UNK, QID
     Route: 048
  8. ACETYLSALICYLIC ACID [Concomitant]
     Dosage: UNK UNK, QD
     Route: 048
  9. ACTONEL [Concomitant]
     Dosage: UNK UNK, QWK
  10. CALCIUM CARBONATE/VITAMIN D [Concomitant]
  11. CLOPIDOGREL BISULFATE [Concomitant]
     Dosage: UNK UNK, QD
  12. METOPROLOL [Concomitant]
     Dosage: UNK UNK, BID
  13. ROSUVASTATIN CALCIUM [Concomitant]
     Dosage: UNK UNK, QD
  14. VALSARTAN [Concomitant]
     Dosage: UNK UNK, QD
  15. FOLIC ACID [Concomitant]
     Dosage: UNK UNK, BID

REACTIONS (11)
  - Myocardial infarction [Unknown]
  - Precancerous cells present [Not Recovered/Not Resolved]
  - Rheumatoid arthritis [Unknown]
  - Chest pain [Unknown]
  - Injection site reaction [Unknown]
  - Injection site swelling [Unknown]
  - Injection site erythema [Unknown]
  - Injection site pruritus [Unknown]
  - Mastitis [Unknown]
  - Weight increased [Unknown]
  - Increased appetite [Unknown]
